FAERS Safety Report 5551006-0 (Version None)
Quarter: 2007Q4

REPORT INFORMATION
  Report Type: 
  Country: None (occurrence: None)
  Receive Date: 20071128
  Receipt Date: 20070809
  Transmission Date: 20080405
  Serious: Yes (Other)
  Sender: FDA-Public Use
  Company Number: 2006089642

PATIENT
  Age: 48 Year
  Sex: Male

DRUGS (1)
  1. LIPITOR [Suspect]
     Indication: HYPERLIPIDAEMIA
     Dosage: 10 MG (10 MG, 1 IN 1 D)
     Dates: start: 20010101

REACTIONS (5)
  - AMNESIA [None]
  - ASTHENIA [None]
  - DEPRESSION [None]
  - DISORIENTATION [None]
  - NEUROPATHY PERIPHERAL [None]
